FAERS Safety Report 17006422 (Version 1)
Quarter: 2019Q4

REPORT INFORMATION
  Report Type: Spontaneous
  Country: TR (occurrence: TR)
  Receive Date: 20191107
  Receipt Date: 20191107
  Transmission Date: 20200122
  Serious: Yes (Hospitalization)
  Sender: FDA-Public Use
  Company Number: TR-TOLMAR, INC.-19TR000161

PATIENT
  Age: 76 Year
  Sex: Male

DRUGS (3)
  1. BELOC [PROPRANOLOL HYDROCHLORIDE] [Concomitant]
     Active Substance: PROPRANOLOL HYDROCHLORIDE
  2. ELIGARD [Suspect]
     Active Substance: LEUPROLIDE ACETATE
     Indication: PROSTATE CANCER
     Dosage: 45 MILLIGRAM, EVERY 6 MONTHS
     Route: 058
     Dates: start: 201903
  3. LANTUS [Concomitant]
     Active Substance: INSULIN GLARGINE

REACTIONS (5)
  - Blood testosterone increased [Unknown]
  - Platelet count increased [Unknown]
  - Hepatic function abnormal [Unknown]
  - Prostatic specific antigen increased [Unknown]
  - Drug ineffective [None]

NARRATIVE: CASE EVENT DATE: 20190904
